APPROVED DRUG PRODUCT: OMEPRAZOLE
Active Ingredient: OMEPRAZOLE
Strength: 20MG
Dosage Form/Route: CAPSULE, DELAYED REL PELLETS;ORAL
Application: A204012 | Product #002 | TE Code: AB
Applicant: HETERO LABS LTD UNIT III
Approved: Sep 26, 2019 | RLD: No | RS: No | Type: RX